FAERS Safety Report 5488218-0 (Version None)
Quarter: 2007Q4

REPORT INFORMATION
  Report Type: 
  Country: None (occurrence: None)
  Receive Date: 20071005
  Receipt Date: 20070801
  Transmission Date: 20080405
  Serious: No
  Sender: FDA-Public Use
  Company Number: PHEH2007US10679

PATIENT
  Sex: Male

DRUGS (2)
  1. TEKTURNA [Suspect]
     Indication: HYPERTENSION
     Dosage: ORAL
     Route: 048
  2. CHOLESTEROL-AND TRIGLYCERIDE REDUCER (NO INGREDIENTS/SUBSTANCES) [Concomitant]

REACTIONS (1)
  - PRURITUS [None]
